FAERS Safety Report 6874989-5 (Version None)
Quarter: 2010Q3

REPORT INFORMATION
  Report Type: 
  Country: None (occurrence: None)
  Receive Date: 20100723
  Receipt Date: 20100715
  Transmission Date: 20110219
  Serious: Yes (Other)
  Sender: FDA-Public Use
  Company Number: 2005-08-0259

PATIENT
  Age: 59 Year
  Sex: Female

DRUGS (2)
  1. INTRON A [Suspect]
     Indication: ALLERGIC GRANULOMATOUS ANGIITIS
     Dosage: 5 MIU; TIW; SC
     Route: 058
     Dates: start: 19970401, end: 20010401
  2. PREDNISOLONE (ORAL) (PREDNISOLONE /00016201/) [Suspect]
     Indication: ALLERGIC GRANULOMATOUS ANGIITIS
     Dosage: 8 MG; QD;

REACTIONS (6)
  - ARRHYTHMIA [None]
  - BRONCHITIS [None]
  - LEUKOENCEPHALOPATHY [None]
  - ORAL CANDIDIASIS [None]
  - PERICARDITIS [None]
  - PSYCHOTIC DISORDER [None]
